FAERS Safety Report 9156388 (Version 1)
Quarter: 2013Q1

REPORT INFORMATION
  Report Type: Spontaneous
  Country: US (occurrence: None)
  Receive Date: 20130308
  Receipt Date: 20130308
  Transmission Date: 20140127
  Serious: Yes (Other)
  Sender: FDA-Public Use
  Company Number: None

PATIENT
  Age: 27 Year
  Sex: Female
  Weight: 88.45 kg

DRUGS (1)
  1. CYMBALTA 30MG LILLY [Suspect]
     Indication: NECK PAIN
     Dosage: 1 CAPSULES DAILY PO
     Route: 048
     Dates: start: 20130306, end: 20130306

REACTIONS (4)
  - Influenza like illness [None]
  - Pain [None]
  - Nausea [None]
  - Abdominal pain [None]
